FAERS Safety Report 26147579 (Version 1)
Quarter: 2025Q4

REPORT INFORMATION
  Report Type: Spontaneous
  Country: EU (occurrence: EU)
  Receive Date: 20251211
  Receipt Date: 20251211
  Transmission Date: 20260118
  Serious: No
  Sender: ABBVIE
  Company Number: None

PATIENT
  Age: 37 Year
  Sex: Female
  Weight: 56 kg

DRUGS (2)
  1. LEVONORGESTREL [Suspect]
     Active Substance: LEVONORGESTREL
     Indication: Product used for unknown indication
     Dosage: DOSE FORM- INTRAUTERINE RELEASE DEVICE?FORM STRENGTH- 52 MG
     Route: 015
     Dates: start: 20201008, end: 20250911
  2. Daflon [Concomitant]
     Indication: Product used for unknown indication
     Route: 048

REACTIONS (3)
  - Maternal exposure during pregnancy [Unknown]
  - Pregnancy with contraceptive device [Unknown]
  - Drug ineffective [Unknown]
